FAERS Safety Report 5038413-X (Version None)
Quarter: 2006Q2

REPORT INFORMATION
  Report Type: 
  Country: None (occurrence: None)
  Receive Date: 20060626
  Receipt Date: 20060626
  Transmission Date: 20061013
  Serious: Yes (Other)
  Sender: FDA-Public Use
  Company Number: None

PATIENT
  Sex: Female
  Weight: 65.7716 kg

DRUGS (1)
  1. PHENERGAN HCL [Suspect]
     Indication: VOMITING
     Dosage: 25 MG ONE DOSE IV
     Route: 042
     Dates: start: 20060425, end: 20060425

REACTIONS (4)
  - DYSKINESIA [None]
  - INJECTION SITE ERYTHEMA [None]
  - INJECTION SITE PAIN [None]
  - VEIN DISORDER [None]
